FAERS Safety Report 13659490 (Version 1)
Quarter: 2017Q2

REPORT INFORMATION
  Report Type: Spontaneous
  Country: US (occurrence: US)
  Receive Date: 20170615
  Receipt Date: 20170615
  Transmission Date: 20170830
  Serious: Yes (Disabling)
  Sender: FDA-Public Use
  Company Number: None

PATIENT
  Age: 58 Year
  Sex: Female
  Weight: 109.86 kg

DRUGS (15)
  1. UBQUININOL [Concomitant]
  2. CIPRO [Suspect]
     Active Substance: CIPROFLOXACIN HYDROCHLORIDE
  3. VALIUM [Concomitant]
     Active Substance: DIAZEPAM
  4. LIQUID MULTI VITAMIN [Concomitant]
  5. VITAMIN E [Concomitant]
     Active Substance: .ALPHA.-TOCOPHEROL
  6. ORGANIC VEGETABLE JUICES [Concomitant]
  7. MAGNESIUM [Concomitant]
     Active Substance: MAGNESIUM
  8. ASCORBATE (BUFFERED VITAMIN C) [Concomitant]
  9. PROTEIN DRINK [Concomitant]
  10. LEVAQUIN [Suspect]
     Active Substance: LEVOFLOXACIN
     Indication: OROPHARYNGEAL PAIN
     Dosage: PO, ONLY TOOK 2 PILLS
     Route: 048
     Dates: start: 20090622, end: 20090624
  11. PERCOCET [Concomitant]
     Active Substance: ACETAMINOPHEN\OXYCODONE HYDROCHLORIDE
  12. MEDITERRANEAN OREGANO [Concomitant]
  13. COLLOIDAL SILVER [Concomitant]
     Active Substance: SILVER
  14. LISINOPRIL. [Concomitant]
     Active Substance: LISINOPRIL
  15. MICELLIZED VITAMIN D3 [Concomitant]

REACTIONS (13)
  - Hypoaesthesia [None]
  - Feeling abnormal [None]
  - Abasia [None]
  - Vision blurred [None]
  - Eating disorder [None]
  - Pain in extremity [None]
  - Pain [None]
  - Gastrointestinal disorder [None]
  - Loss of personal independence in daily activities [None]
  - Cognitive disorder [None]
  - Eye irritation [None]
  - Impaired work ability [None]
  - Surgery [None]

NARRATIVE: CASE EVENT DATE: 20090625
